FAERS Safety Report 15248459 (Version 1)
Quarter: 2018Q3

REPORT INFORMATION
  Report Type: Spontaneous
  Country: US (occurrence: US)
  Receive Date: 20180715
  Receipt Date: 20180715
  Transmission Date: 20181010
  Serious: Yes (Disabling)
  Sender: FDA-Public Use
  Company Number: None

PATIENT
  Age: 24 Year
  Sex: Female
  Weight: 50.85 kg

DRUGS (5)
  1. VITAMIN D3 [Concomitant]
     Active Substance: CHOLECALCIFEROL
  2. ONE A DAY WOMEN GUMMIE [Concomitant]
  3. CIPROGLEN?500 [Suspect]
     Active Substance: CIPROFLOXACIN
     Indication: DIARRHOEA INFECTIOUS
     Dosage: ?          QUANTITY:10 TABLET(S);?
     Route: 048
  4. FERROUS GLUCONATE (IRON) [Concomitant]
  5. CIPROGLEN?500 [Suspect]
     Active Substance: CIPROFLOXACIN
     Indication: DEHYDRATION
     Dosage: ?          QUANTITY:10 TABLET(S);?
     Route: 048

REACTIONS (5)
  - Infection [None]
  - Wheelchair user [None]
  - Incorrect drug administration duration [None]
  - Gait inability [None]
  - Muscular weakness [None]

NARRATIVE: CASE EVENT DATE: 20180707
